FAERS Safety Report 23705566 (Version 3)
Quarter: 2024Q2

REPORT INFORMATION
  Report Type: Report from Study
  Country: CZ (occurrence: CZ)
  Receive Date: 20240404
  Receipt Date: 20240528
  Transmission Date: 20240716
  Serious: Yes (Life-Threatening, Hospitalization, Other)
  Sender: FDA-Public Use
  Company Number: CZ-IPSEN Group, Research and Development-2024-05182

PATIENT
  Age: 5 Year
  Sex: Female
  Weight: 20 kg

DRUGS (3)
  1. TAZEMETOSTAT HYDROBROMIDE [Suspect]
     Active Substance: TAZEMETOSTAT HYDROBROMIDE
     Indication: Neoplasm
     Route: 048
     Dates: start: 20210430, end: 20210514
  2. TAZEMETOSTAT HYDROBROMIDE [Suspect]
     Active Substance: TAZEMETOSTAT HYDROBROMIDE
     Indication: Atypical teratoid/rhabdoid tumour of CNS
     Route: 048
     Dates: start: 20210622, end: 20240327
  3. TAZEMETOSTAT HYDROBROMIDE [Suspect]
     Active Substance: TAZEMETOSTAT HYDROBROMIDE
     Indication: Off label use

REACTIONS (2)
  - T-cell type acute leukaemia [Not Recovered/Not Resolved]
  - Off label use [Unknown]

NARRATIVE: CASE EVENT DATE: 20240327
